FAERS Safety Report 5122453-6 (Version None)
Quarter: 2006Q4

REPORT INFORMATION
  Report Type: 
  Country: None (occurrence: None)
  Receive Date: 20061004
  Receipt Date: 20060926
  Transmission Date: 20070319
  Serious: Yes (Hospitalization)
  Sender: FDA-Public Use
  Company Number: 228642

PATIENT
  Age: 49 Year
  Sex: Female

DRUGS (5)
  1. AVASTIN [Suspect]
     Indication: NON-SMALL CELL LUNG CANCER
     Dosage: 10 MG/KG, QOW, INTRAVENOUS
     Route: 042
     Dates: start: 20060606, end: 20060717
  2. TAXOL [Suspect]
     Indication: NON-SMALL CELL LUNG CANCER
     Dosage: 45 MG/M2, 1/WEEK, INTRAVENOUS
     Route: 042
     Dates: start: 20060606, end: 20060717
  3. CARBOPLATIN [Suspect]
     Indication: NON-SMALL CELL LUNG CANCER
     Dosage: 2 AUC, 1/WEEK, INTRAVENOUS
     Route: 042
     Dates: start: 20060606
  4. RADIATION THERAPY (RADIATION THERAPY) [Suspect]
     Indication: NON-SMALL CELL LUNG CANCER
     Dosage: 7200 GY
  5. FENTANYL PATCH (FENTANYL CITRATE) [Concomitant]

REACTIONS (1)
  - OESOPHAGITIS [None]
